FAERS Safety Report 17061081 (Version 3)
Quarter: 2020Q4

REPORT INFORMATION
  Report Type: Spontaneous
  Country: US (occurrence: US)
  Receive Date: 20191121
  Receipt Date: 20201214
  Transmission Date: 20210113
  Serious: No
  Sender: FDA-Public Use
  Company Number: US-SA-2019SA321252

PATIENT

DRUGS (8)
  1. SYNTHROID [Concomitant]
     Active Substance: LEVOTHYROXINE SODIUM
  2. DUPIXENT [Suspect]
     Active Substance: DUPILUMAB
     Indication: ENTHESOPATHY
     Dosage: 600 MG, 1X
     Route: 058
     Dates: start: 201912, end: 201912
  3. DUPIXENT [Suspect]
     Active Substance: DUPILUMAB
     Indication: DERMATITIS ATOPIC
     Dosage: 300 MG, QOW
     Route: 058
  4. HYDROXYZINE HCL [Concomitant]
     Active Substance: HYDROXYZINE HYDROCHLORIDE
  5. ELIQUIS [Concomitant]
     Active Substance: APIXABAN
  6. DUPIXENT [Suspect]
     Active Substance: DUPILUMAB
     Dosage: 300 MG, QW
     Route: 058
  7. OZEMPIC [Concomitant]
     Active Substance: SEMAGLUTIDE
  8. PROLIA [Concomitant]
     Active Substance: DENOSUMAB

REACTIONS (7)
  - Product use in unapproved indication [Unknown]
  - Pruritus [Unknown]
  - Injection site mass [Unknown]
  - Rash [Unknown]
  - Therapeutic response unexpected [Unknown]
  - Off label use [Unknown]
  - Therapeutic product effect decreased [Unknown]
